FAERS Safety Report 6928160-9 (Version None)
Quarter: 2010Q3

REPORT INFORMATION
  Report Type: 
  Country: None (occurrence: None)
  Receive Date: 20100817
  Receipt Date: 20100806
  Transmission Date: 20110219
  Serious: Yes (Other)
  Sender: FDA-Public Use
  Company Number: JP-SANOFI-AVENTIS-2010SA046984

PATIENT
  Sex: Male

DRUGS (3)
  1. ELPLAT [Suspect]
     Indication: LARGE INTESTINE CARCINOMA
     Route: 041
  2. XELODA [Suspect]
     Indication: LARGE INTESTINE CARCINOMA
     Route: 048
  3. AVASTIN [Suspect]
     Indication: LARGE INTESTINE CARCINOMA
     Route: 041

REACTIONS (1)
  - REVERSIBLE POSTERIOR LEUKOENCEPHALOPATHY SYNDROME [None]
